FAERS Safety Report 7811191-4 (Version None)
Quarter: 2011Q4

REPORT INFORMATION
  Report Type: 
  Country: None (occurrence: None)
  Receive Date: 20111011
  Receipt Date: 20110929
  Transmission Date: 20120403
  Serious: Yes (Hospitalization)
  Sender: FDA-Public Use
  Company Number: 124278

PATIENT
  Age: 63 Year
  Sex: Male
  Weight: 108 kg

DRUGS (2)
  1. ETOPOSIDE [Suspect]
     Indication: NON-SMALL CELL LUNG CANCER
     Dosage: 50 MG/M2
     Dates: start: 20110228
  2. ETOPOSIDE [Suspect]
     Indication: NON-SMALL CELL LUNG CANCER
     Dosage: 50 MG/M2
     Dates: start: 20110429

REACTIONS (7)
  - HYPOXIA [None]
  - PYREXIA [None]
  - RADIATION PNEUMONITIS [None]
  - PNEUMONITIS CHEMICAL [None]
  - VIRAL INFECTION [None]
  - BACTERIAL INFECTION [None]
  - MYCOBACTERIAL INFECTION [None]
